FAERS Safety Report 7808142-5 (Version None)
Quarter: 2011Q4

REPORT INFORMATION
  Report Type: 
  Country: None (occurrence: None)
  Receive Date: 20111011
  Receipt Date: 20110926
  Transmission Date: 20120403
  Serious: Yes (Hospitalization)
  Sender: FDA-Public Use
  Company Number: US-ROCHE-800993

PATIENT
  Sex: Female

DRUGS (3)
  1. TARCEVA [Suspect]
     Dosage: FREQUENCY: EVERY OTHER DAY
     Route: 048
  2. TARCEVA [Suspect]
     Indication: LUNG CARCINOMA CELL TYPE UNSPECIFIED STAGE IV
     Route: 048
  3. DEXAMETHASONE [Suspect]
     Indication: PRODUCT USED FOR UNKNOWN INDICATION
     Route: 065

REACTIONS (6)
  - SWELLING [None]
  - DIARRHOEA [None]
  - RASH [None]
  - FATIGUE [None]
  - CANDIDIASIS [None]
  - DEHYDRATION [None]
